FAERS Safety Report 17768878 (Version 3)
Quarter: 2020Q2

REPORT INFORMATION
  Report Type: Report from Study
  Country: ES (occurrence: ES)
  Receive Date: 20200512
  Receipt Date: 20200602
  Transmission Date: 20200714
  Serious: Yes (Other)
  Sender: FDA-Public Use
  Company Number: ES-SA-2020SA086203

PATIENT

DRUGS (9)
  1. ENOXAPARIN [Concomitant]
     Active Substance: ENOXAPARIN
     Indication: PROPHYLAXIS
     Dosage: 40 MG, QD
     Route: 058
     Dates: start: 20200328, end: 20200423
  2. METHYLPREDNISOLONE. [Concomitant]
     Active Substance: METHYLPREDNISOLONE
     Dosage: 80 MG, QD
     Route: 042
     Dates: start: 20200405, end: 20200408
  3. SARILUMAB [Suspect]
     Active Substance: SARILUMAB
     Indication: CORONAVIRUS INFECTION
     Dosage: INFUSION RATE (ML/H): 100, 1X
     Route: 042
     Dates: start: 20200330, end: 20200330
  4. PARACETAMOL [Concomitant]
     Active Substance: ACETAMINOPHEN
     Indication: PRE-EXISTING DISEASE
     Dosage: 1 G, PRN
     Route: 042
     Dates: start: 20200331, end: 20200331
  5. PARACETAMOL [Concomitant]
     Active Substance: ACETAMINOPHEN
     Dosage: 1 G, PRN
     Route: 042
     Dates: start: 20200405, end: 20200405
  6. LOPINAVIR [Concomitant]
     Active Substance: LOPINAVIR
     Indication: PRE-EXISTING DISEASE
     Dosage: 400 MG, BID
     Route: 048
     Dates: start: 20200328, end: 20200403
  7. RITONAVIR. [Concomitant]
     Active Substance: RITONAVIR
     Indication: PRE-EXISTING DISEASE
     Dosage: 100 MG, BID
     Route: 048
     Dates: start: 20200328, end: 20200403
  8. HYDROXYCHLOROQUINE [Concomitant]
     Active Substance: HYDROXYCHLOROQUINE
     Indication: PRE-EXISTING DISEASE
     Dosage: 200 MG, BID
     Route: 048
     Dates: start: 20200329, end: 20200401
  9. AZITHROMYCIN ANHYDROUS. [Concomitant]
     Active Substance: AZITHROMYCIN ANHYDROUS
     Indication: PRE-EXISTING DISEASE
     Dosage: 500 MG, QD
     Route: 048
     Dates: start: 20200328, end: 20200403

REACTIONS (1)
  - Hepatitis [Recovered/Resolved]

NARRATIVE: CASE EVENT DATE: 20200405
